FAERS Safety Report 23201137 (Version 1)
Quarter: 2023Q4

REPORT INFORMATION
  Report Type: Spontaneous
  Country: BR (occurrence: BR)
  Receive Date: 20231118
  Receipt Date: 20231118
  Transmission Date: 20240109
  Serious: Yes (Other)
  Sender: FDA-Public Use
  Company Number: BR-JNJFOC-20230718318

PATIENT
  Age: 66 Year
  Sex: Female
  Weight: 42 kg

DRUGS (3)
  1. IMBRUVICA [Suspect]
     Active Substance: IBRUTINIB
     Indication: Waldenstrom^s macroglobulinaemia
     Dosage: 3 PILLS A DAY
     Route: 048
  2. IMBRUVICA [Suspect]
     Active Substance: IBRUTINIB
     Indication: Waldenstrom^s macroglobulinaemia
     Dosage: 3 PILLS A DAY
     Route: 048
     Dates: start: 201606
  3. IMBRUVICA [Suspect]
     Active Substance: IBRUTINIB
     Indication: Waldenstrom^s macroglobulinaemia
     Route: 048
     Dates: start: 2015

REACTIONS (6)
  - Neoplasm malignant [Unknown]
  - Influenza [Recovered/Resolved]
  - Herpes zoster [Recovered/Resolved]
  - Weight decreased [Unknown]
  - Urinary tract infection [Unknown]
  - Immunodeficiency [Unknown]

NARRATIVE: CASE EVENT DATE: 20230401
